FAERS Safety Report 11771121 (Version 1)
Quarter: 2015Q4

REPORT INFORMATION
  Report Type: Spontaneous
  Country: US (occurrence: US)
  Receive Date: 20151124
  Receipt Date: 20151124
  Transmission Date: 20160304
  Serious: No
  Sender: FDA-Public Use
  Company Number: US-TEVA-611605ACC

PATIENT
  Sex: Female

DRUGS (1)
  1. PLAN B ONE-STEP [Suspect]
     Active Substance: LEVONORGESTREL
     Indication: POST COITAL CONTRACEPTION
     Dates: start: 20151010, end: 20151010

REACTIONS (5)
  - Vaginal haemorrhage [Recovered/Resolved]
  - Affective disorder [Not Recovered/Not Resolved]
  - Menstruation delayed [Not Recovered/Not Resolved]
  - Breast swelling [Not Recovered/Not Resolved]
  - Premenstrual syndrome [Unknown]

NARRATIVE: CASE EVENT DATE: 20151015
